FAERS Safety Report 6161059-7 (Version None)
Quarter: 2009Q2

REPORT INFORMATION
  Report Type: 
  Country: None (occurrence: None)
  Receive Date: 20090420
  Receipt Date: 20090407
  Transmission Date: 20091009
  Serious: Yes (Other)
  Sender: FDA-Public Use
  Company Number: GB-PFIZER INC-2009194250

PATIENT

DRUGS (8)
  1. CHAMPIX [Suspect]
     Indication: SMOKING CESSATION THERAPY
     Dosage: 1 MG, UNK
     Route: 048
     Dates: start: 20090202, end: 20090317
  2. BENZOYL PEROXIDE [Concomitant]
     Dosage: UNK
     Route: 061
     Dates: start: 20090306
  3. CLINDAMYCIN PHOSPHATE [Concomitant]
     Dosage: UNK
     Route: 061
     Dates: start: 20090306
  4. ACETAMINOPHEN W/ CODEINE [Concomitant]
     Indication: PAIN
     Dosage: UNK
     Route: 048
     Dates: start: 20081208
  5. DICLOFENAC [Concomitant]
     Indication: PAIN
     Dosage: 25 MG, UNK
     Route: 048
     Dates: start: 20081208
  6. OMEPRAZOLE [Concomitant]
     Indication: GASTROINTESTINAL DISORDER
     Dosage: 20 MG, UNK
     Route: 048
     Dates: start: 20081208
  7. TOPIRAMATE [Concomitant]
     Indication: PAIN
     Dosage: 50 MG, 2X/DAY
     Route: 048
  8. TOPIRAMATE [Concomitant]
     Indication: HEADACHE

REACTIONS (2)
  - CRYING [None]
  - DEPRESSED MOOD [None]
